FAERS Safety Report 17543422 (Version 1)
Quarter: 2020Q1

REPORT INFORMATION
  Report Type: Spontaneous
  Country: US (occurrence: US)
  Receive Date: 20200316
  Receipt Date: 20200316
  Transmission Date: 20200409
  Serious: No
  Sender: FDA-Public Use
  Company Number: US-009507513-2003USA003474

PATIENT
  Age: 45 Year
  Sex: Female

DRUGS (4)
  1. HYDROXYCHLOROQUINE SULFATE. [Concomitant]
     Active Substance: HYDROXYCHLOROQUINE SULFATE
     Indication: LICHEN PLANOPILARIS
     Dosage: 200 MG TWICE DAILY
     Route: 048
  2. PROPECIA [Suspect]
     Active Substance: FINASTERIDE
     Indication: LICHEN PLANOPILARIS
     Dosage: 5 MG DAILY
     Route: 048
  3. TRIAMCINOLONE ACETONIDE. [Concomitant]
     Active Substance: TRIAMCINOLONE ACETONIDE
     Indication: LICHEN PLANOPILARIS
     Dosage: 2.5 MG/ML ONCE PER MONTH
  4. MINOXIDIL. [Concomitant]
     Active Substance: MINOXIDIL
     Indication: LICHEN PLANOPILARIS
     Dosage: ONE DROP APPLIED TWICE DAILY TO THE EYEBROWS

REACTIONS (1)
  - Product use issue [Unknown]
